FAERS Safety Report 22935522 (Version 4)
Quarter: 2023Q4

REPORT INFORMATION
  Report Type: Report from Study
  Country: AU (occurrence: AU)
  Receive Date: 20230912
  Receipt Date: 20231117
  Transmission Date: 20240109
  Serious: Yes (Hospitalization, Other)
  Sender: FDA-Public Use
  Company Number: AU-SERVIER-S23009282

PATIENT

DRUGS (8)
  1. TEMAZEPAM [Concomitant]
     Active Substance: TEMAZEPAM
     Indication: Insomnia
     Dosage: UNK, PRN
     Route: 048
     Dates: start: 20230506
  2. PALEXIA [Concomitant]
     Active Substance: TAPENTADOL HYDROCHLORIDE
     Indication: Medical device site pain
     Dosage: UNK, PRN
     Route: 048
     Dates: start: 20230529
  3. BIOMATRIX [Concomitant]
     Indication: Prophylaxis
     Dosage: UNK, PRN
     Route: 048
     Dates: start: 20230710
  4. ORTHOPLEX D.E.F [Concomitant]
     Indication: Prophylaxis
     Dosage: UNK, BID
     Route: 048
     Dates: start: 20230710
  5. DIETARY SUPPLEMENT\HERBALS\MILK THISTLE [Concomitant]
     Active Substance: MILK THISTLE
     Indication: Prophylaxis
     Dosage: UNK, TID
     Route: 048
     Dates: start: 20230710
  6. UltraLiv [Concomitant]
     Indication: Prophylaxis
     Dosage: UNK, BID
     Route: 048
     Dates: start: 20230710
  7. Biome advanced probiotic [Concomitant]
     Indication: Prophylaxis
     Dosage: UNK, QD
     Route: 048
     Dates: start: 20230710
  8. BASICA ACTIVE [Concomitant]
     Indication: Prophylaxis
     Dosage: UNK, QD
     Route: 048
     Dates: start: 20230710

REACTIONS (6)
  - Ascites [Recovered/Resolved]
  - Pleural effusion [Recovered/Resolved]
  - Klebsiella sepsis [Recovered/Resolved]
  - Nausea [Not Recovered/Not Resolved]
  - Pyrexia [Recovered/Resolved]
  - Nausea [Not Recovered/Not Resolved]

NARRATIVE: CASE EVENT DATE: 20230809
